FAERS Safety Report 9463101 (Version 1)
Quarter: 2013Q3

REPORT INFORMATION
  Report Type: Spontaneous
  Country: US (occurrence: US)
  Receive Date: 20130816
  Receipt Date: 20130816
  Transmission Date: 20140515
  Serious: Yes (Other)
  Sender: FDA-Public Use
  Company Number: US-ASTRAZENECA-2013SE62311

PATIENT
  Age: 54 Year
  Sex: Female
  Weight: 62.2 kg

DRUGS (6)
  1. SEROQUEL [Suspect]
     Indication: SCHIZOPHRENIA
     Dosage: 100-400MG
     Route: 048
     Dates: start: 200307, end: 200404
  2. SEROQUEL [Suspect]
     Indication: SCHIZOPHRENIA
     Dosage: 100MG INCREASED TO 400MG
     Route: 048
  3. SEROQUEL [Suspect]
     Indication: SCHIZOPHRENIA
     Dosage: 100MG INCREASED TO 400MG
     Route: 048
     Dates: start: 200804, end: 200810
  4. RISPERDAL [Concomitant]
  5. OLANZAPINE [Concomitant]
  6. HALDOL [Concomitant]

REACTIONS (9)
  - Varicose vein [Unknown]
  - Adverse drug reaction [Unknown]
  - Hypoaesthesia [Unknown]
  - Emotional disorder [Unknown]
  - Thirst [Unknown]
  - Paranoia [Unknown]
  - Weight decreased [Unknown]
  - Adverse event [Unknown]
  - Somnolence [Unknown]
